FAERS Safety Report 7644186-4 (Version None)
Quarter: 2011Q3

REPORT INFORMATION
  Report Type: 
  Country: None (occurrence: None)
  Receive Date: 20110729
  Receipt Date: 20110722
  Transmission Date: 20111222
  Serious: Yes (Other)
  Sender: FDA-Public Use
  Company Number: US-TEVA-285158USA

PATIENT
  Age: 24 Year
  Sex: Female

DRUGS (2)
  1. YAZ [Concomitant]
  2. CLARAVIS [Suspect]
     Dosage: 40 MILLIGRAM;
     Route: 048
     Dates: start: 20110127, end: 20110301

REACTIONS (2)
  - ABORTION SPONTANEOUS [None]
  - UNINTENDED PREGNANCY [None]
